FAERS Safety Report 18033403 (Version 2)
Quarter: 2020Q4

REPORT INFORMATION
  Report Type: Report from Study
  Country: US (occurrence: US)
  Receive Date: 20200716
  Receipt Date: 20201013
  Transmission Date: 20210113
  Serious: Yes (Other)
  Sender: FDA-Public Use
  Company Number: US-AGIOS-2007US02033

PATIENT

DRUGS (1)
  1. TIBSOVO [Suspect]
     Active Substance: IVOSIDENIB
     Indication: BILE DUCT CANCER
     Dosage: 250MG, 2 TABLETS (500MG) DAILY
     Route: 048
     Dates: start: 20200325, end: 20201008

REACTIONS (8)
  - Pituitary enlargement [Unknown]
  - Somnolence [Recovered/Resolved]
  - Pain [Recovered/Resolved]
  - Disease progression [Unknown]
  - Discomfort [Recovered/Resolved]
  - Off label use [Recovered/Resolved]
  - Aneurysm [Unknown]
  - Haemorrhage intracranial [Unknown]

NARRATIVE: CASE EVENT DATE: 20200325
